FAERS Safety Report 4758336-0 (Version None)
Quarter: 2005Q3

REPORT INFORMATION
  Report Type: 
  Country: None (occurrence: None)
  Receive Date: 20050826
  Receipt Date: 20050511
  Transmission Date: 20060218
  Serious: No
  Sender: FDA-Public Use
  Company Number: WAES 0505USA01705

PATIENT
  Sex: Male

DRUGS (1)
  1. ZETIA [Suspect]
     Dosage: PO
     Route: 048

REACTIONS (6)
  - ARTHRALGIA [None]
  - BACK PAIN [None]
  - FATIGUE [None]
  - NAUSEA [None]
  - PAIN IN JAW [None]
  - TOOTHACHE [None]
